FAERS Safety Report 21438537 (Version 1)
Quarter: 2022Q4

REPORT INFORMATION
  Report Type: Report from Study
  Country: AU (occurrence: AU)
  Receive Date: 20221011
  Receipt Date: 20221011
  Transmission Date: 20230113
  Serious: Yes (Other)
  Sender: FDA-Public Use
  Company Number: AU-SUN PHARMACEUTICAL INDUSTRIES LTD-2022R1-358278

PATIENT
  Age: 71 Year
  Sex: Male

DRUGS (2)
  1. AMIFOSTINE [Suspect]
     Active Substance: AMIFOSTINE
     Indication: Immune thrombocytopenia
     Dosage: 5 CYCLE
     Route: 065
  2. RITUXIMAB [Suspect]
     Active Substance: RITUXIMAB
     Indication: Immune thrombocytopenia
     Dosage: 4 CYCLE
     Route: 065

REACTIONS (3)
  - Drug ineffective [Unknown]
  - Pulmonary oedema [Unknown]
  - Atrial fibrillation [Unknown]
